FAERS Safety Report 6734316-0 (Version None)
Quarter: 2010Q2

REPORT INFORMATION
  Report Type: 
  Country: None (occurrence: None)
  Receive Date: 20100520
  Receipt Date: 20100510
  Transmission Date: 20101027
  Serious: Yes (Death)
  Sender: FDA-Public Use
  Company Number: DK-ROCHE-702263

PATIENT
  Sex: Female

DRUGS (3)
  1. CELLCEPT [Suspect]
     Route: 048
     Dates: start: 20091223
  2. ROMIPLOSTIM [Suspect]
     Dosage: DRUG:NPLATE
     Route: 058
     Dates: start: 20091223
  3. PREDNISOLONE [Concomitant]
     Dosage: FREQUENCY: QD
     Dates: start: 20071204

REACTIONS (1)
  - DEATH [None]
